FAERS Safety Report 9887389 (Version 1)
Quarter: 2014Q1

REPORT INFORMATION
  Report Type: Report from Study
  Country: US (occurrence: US)
  Receive Date: 20140211
  Receipt Date: 20140211
  Transmission Date: 20141002
  Serious: Yes (Other)
  Sender: FDA-Public Use
  Company Number: US-ROCHE-1327139

PATIENT
  Sex: Female
  Weight: 63.11 kg

DRUGS (13)
  1. AVASTIN [Suspect]
     Indication: GLIOBLASTOMA
     Route: 042
     Dates: start: 201111
  2. AVASTIN [Suspect]
     Indication: BRAIN NEOPLASM MALIGNANT
     Dosage: 635 MG
     Route: 042
     Dates: start: 20120705
  3. AVASTIN [Suspect]
     Dosage: 640 MG
     Route: 042
     Dates: start: 20120229
  4. AVASTIN [Suspect]
     Dosage: 656 MG
     Route: 042
     Dates: start: 20120516
  5. PROCARBAZINE [Concomitant]
     Route: 065
     Dates: start: 201111
  6. TEMODAR [Concomitant]
     Dosage: 5 DAYS ON A 28 DAY CYCLE; 100MG/DAY
     Route: 042
     Dates: start: 201111
  7. SYNTHROID [Concomitant]
     Route: 042
  8. TEGRETOL [Concomitant]
     Route: 065
  9. CORTEF [Concomitant]
     Dosage: EVERY MORNING
     Route: 065
  10. CORTEF [Concomitant]
     Dosage: EVERY NIGHT
     Route: 065
  11. TYLENOL [Concomitant]
  12. SUPEUDOL [Concomitant]
     Route: 065
  13. BENADRYL (UNITED STATES) [Concomitant]
     Route: 048

REACTIONS (10)
  - Blindness unilateral [Unknown]
  - Thrombocytopenia [Unknown]
  - Pain [Unknown]
  - Appetite disorder [Unknown]
  - Eye movement disorder [Unknown]
  - Hemiparesis [Unknown]
  - Constipation [Unknown]
  - Back pain [Unknown]
  - Disease progression [Unknown]
  - Eye movement disorder [Unknown]
